FAERS Safety Report 16098277 (Version 3)
Quarter: 2019Q2

REPORT INFORMATION
  Report Type: Spontaneous
  Country: US (occurrence: US)
  Receive Date: 20190321
  Receipt Date: 20190416
  Transmission Date: 20190711
  Serious: Yes (Death, Other)
  Sender: FDA-Public Use
  Company Number: US-ASTRAZENECA-2019SE43616

PATIENT
  Age: 27476 Day
  Sex: Male
  Weight: 78.9 kg

DRUGS (15)
  1. NEXIUM [Suspect]
     Active Substance: ESOMEPRAZOLE MAGNESIUM
     Indication: GASTROOESOPHAGEAL REFLUX DISEASE
     Route: 048
     Dates: start: 2012, end: 2013
  2. PRILOSEC OTC [Suspect]
     Active Substance: OMEPRAZOLE MAGNESIUM
     Route: 048
  3. LORAZEPAM. [Concomitant]
     Active Substance: LORAZEPAM
  4. SERTRALINE [Concomitant]
     Active Substance: SERTRALINE HYDROCHLORIDE
  5. OMEPRAZOLE. [Suspect]
     Active Substance: OMEPRAZOLE
     Indication: DYSPEPSIA
     Dosage: GENERIC
     Route: 065
     Dates: start: 2015
  6. PEPCID COMPLETE OTC [Concomitant]
  7. NEXIUM [Suspect]
     Active Substance: ESOMEPRAZOLE MAGNESIUM
     Indication: GASTROOESOPHAGEAL REFLUX DISEASE
     Route: 048
     Dates: start: 2008, end: 2017
  8. NEXIUM [Suspect]
     Active Substance: ESOMEPRAZOLE MAGNESIUM
     Indication: GASTROOESOPHAGEAL REFLUX DISEASE
     Route: 048
     Dates: start: 20130225
  9. OMEPRAZOLE. [Concomitant]
     Active Substance: OMEPRAZOLE
  10. ASPIRIN. [Concomitant]
     Active Substance: ASPIRIN
  11. VITAMIN D2 [Concomitant]
     Active Substance: ERGOCALCIFEROL
  12. NIFEDIPINE. [Concomitant]
     Active Substance: NIFEDIPINE
  13. PROTONIX [Suspect]
     Active Substance: PANTOPRAZOLE SODIUM
     Route: 065
     Dates: start: 2008, end: 2017
  14. FUROSEMIDE. [Concomitant]
     Active Substance: FUROSEMIDE
  15. ZOLPIDEM [Concomitant]
     Active Substance: ZOLPIDEM\ZOLPIDEM TARTRATE

REACTIONS (5)
  - Chronic kidney disease [Unknown]
  - Acute kidney injury [Unknown]
  - End stage renal disease [Unknown]
  - Cardiac failure congestive [Fatal]
  - Renal failure [Fatal]

NARRATIVE: CASE EVENT DATE: 20161115
